FAERS Safety Report 24986685 (Version 1)
Quarter: 2025Q1

REPORT INFORMATION
  Report Type: Spontaneous
  Country: JP (occurrence: JP)
  Receive Date: 20250219
  Receipt Date: 20250219
  Transmission Date: 20250409
  Serious: Yes (Hospitalization, Other)
  Sender: ALEXION PHARMACEUTICALS
  Company Number: JP-ASTRAZENECA-250011064_063010_P_1

PATIENT
  Age: 48 Year
  Weight: 59 kg

DRUGS (13)
  1. DAPAGLIFLOZIN [Suspect]
     Active Substance: DAPAGLIFLOZIN
     Indication: Cardiac failure
     Dosage: 10 MILLIGRAM, QD
  2. DAPAGLIFLOZIN [Suspect]
     Active Substance: DAPAGLIFLOZIN
     Dosage: 10 MILLIGRAM, QD
  3. FUROSEMIDE [Concomitant]
     Active Substance: FUROSEMIDE
  4. FUROSEMIDE [Concomitant]
     Active Substance: FUROSEMIDE
  5. FUROSEMIDE [Concomitant]
     Active Substance: FUROSEMIDE
  6. FUROSEMIDE [Concomitant]
     Active Substance: FUROSEMIDE
  7. SPIRONOLACTONE [Concomitant]
     Active Substance: SPIRONOLACTONE
     Indication: Cardiac failure
     Route: 065
  8. BISOPROLOL [Concomitant]
     Active Substance: BISOPROLOL
     Route: 065
  9. BISOPROLOL [Concomitant]
     Active Substance: BISOPROLOL
     Route: 065
  10. BISOPROLOL [Concomitant]
     Active Substance: BISOPROLOL
     Route: 065
  11. PIMOBENDAN [Concomitant]
     Active Substance: PIMOBENDAN
     Route: 065
  12. DIGOXIN [Concomitant]
     Active Substance: DIGOXIN
     Route: 065
  13. CANRENOATE POTASSIUM [Concomitant]
     Active Substance: CANRENOATE POTASSIUM
     Route: 065

REACTIONS (6)
  - Cardiac failure [Unknown]
  - Congestive hepatopathy [Recovered/Resolved]
  - Pulmonary congestion [Unknown]
  - Bradycardia [Unknown]
  - Hypotension [Unknown]
  - Weight increased [Unknown]
